FAERS Safety Report 7459746-3 (Version None)
Quarter: 2011Q2

REPORT INFORMATION
  Report Type: 
  Country: None (occurrence: None)
  Receive Date: 20110505
  Receipt Date: 20110425
  Transmission Date: 20111010
  Serious: Yes (Other)
  Sender: FDA-Public Use
  Company Number: CA-US-EMD SERONO, INC.-220002K09CAN

PATIENT
  Sex: Male

DRUGS (1)
  1. SAIZEN [Suspect]
     Indication: GROWTH HORMONE DEFICIENCY
     Dates: start: 20081215

REACTIONS (3)
  - MUSCULOSKELETAL DISCOMFORT [None]
  - MUSCULOSKELETAL STIFFNESS [None]
  - GRAND MAL CONVULSION [None]
